FAERS Safety Report 13353309 (Version 1)
Quarter: 2017Q1

REPORT INFORMATION
  Report Type: Spontaneous
  Country: US (occurrence: US)
  Receive Date: 20170317
  Receipt Date: 20170317
  Transmission Date: 20170429
  Serious: No
  Sender: FDA-Public Use
  Company Number: None

PATIENT
  Age: 56 Year
  Sex: Female

DRUGS (5)
  1. BOTOX [Suspect]
     Active Substance: ONABOTULINUMTOXINA
     Indication: CEREBRAL INFARCTION
  2. BOTOX [Suspect]
     Active Substance: ONABOTULINUMTOXINA
     Indication: ARTERIOSCLEROSIS CORONARY ARTERY
  3. BOTOX [Suspect]
     Active Substance: ONABOTULINUMTOXINA
     Indication: ESSENTIAL HYPERTENSION
  4. BOTOX [Suspect]
     Active Substance: ONABOTULINUMTOXINA
     Indication: MIGRAINE WITHOUT AURA
  5. BOTOX [Suspect]
     Active Substance: ONABOTULINUMTOXINA
     Indication: PRODUCT USED FOR UNKNOWN INDICATION

REACTIONS (1)
  - Cerebrovascular disorder [None]

NARRATIVE: CASE EVENT DATE: 20170303
